FAERS Safety Report 15534081 (Version 1)
Quarter: 2018Q4

REPORT INFORMATION
  Report Type: Spontaneous
  Country: DE (occurrence: DE)
  Receive Date: 20181019
  Receipt Date: 20181019
  Transmission Date: 20190205
  Serious: Yes (Death, Other)
  Sender: FDA-Public Use
  Company Number: DE-SA-2018SA121074

PATIENT
  Age: 58 Year
  Sex: Female
  Weight: 54 kg

DRUGS (50)
  1. IMUREK [AZATHIOPRINE] [Suspect]
     Active Substance: AZATHIOPRINE
     Dosage: UNK UNK,UNK
     Route: 048
     Dates: start: 19950119, end: 19950119
  2. ZANTAC [Concomitant]
     Active Substance: RANITIDINE HYDROCHLORIDE
     Indication: HYPERSENSITIVITY
     Dosage: UNK UNK,UNK
     Route: 042
     Dates: start: 19950117, end: 19950117
  3. CAPTOPRIL. [Concomitant]
     Active Substance: CAPTOPRIL
     Indication: HYPERTENSION
     Dosage: 1 DF,QD
     Route: 048
     Dates: start: 19941229, end: 19941229
  4. SODIUM CITRATE. [Concomitant]
     Active Substance: SODIUM CITRATE
     Indication: METABOLIC ACIDOSIS
     Dosage: 4 DF,QD
     Route: 048
     Dates: start: 19950119, end: 19950331
  5. ISOPTIN [VERAPAMIL] [Concomitant]
     Indication: ARRHYTHMIA
     Dosage: 3 DF,QD
     Route: 048
     Dates: start: 19941228, end: 19941228
  6. CALCIUM CITRATE [Concomitant]
     Active Substance: CALCIUM CITRATE
     Indication: METABOLIC ACIDOSIS
     Dosage: 4 DF, QD
     Route: 048
     Dates: start: 19950119, end: 19950331
  7. ACETYLSALICYLIC ACID [Suspect]
     Active Substance: ASPIRIN
     Dosage: 1 DF,QD
     Route: 048
  8. NOVALGIN (METAMIZOLE SODIUM) [Suspect]
     Active Substance: METAMIZOLE SODIUM
     Indication: PYREXIA
     Dosage: UNK UNK,UNK
     Route: 042
     Dates: start: 19941228, end: 19941228
  9. ENALAPRIL MALEATE. [Suspect]
     Active Substance: ENALAPRIL MALEATE
     Dosage: UNK
  10. AMOXICILLIN TRIHYDRATE/POTASSIUM CLAVULANATE [Suspect]
     Active Substance: AMOXICILLIN\CLAVULANATE POTASSIUM
     Dosage: 3 DF,QD
     Route: 048
     Dates: start: 19950117, end: 19950117
  11. DIFLUCAN [Concomitant]
     Active Substance: FLUCONAZOLE
     Indication: FUNGAL INFECTION
     Dosage: 200 MG,QD
     Route: 048
     Dates: start: 19950120, end: 19950124
  12. NEUPOGEN [Concomitant]
     Active Substance: FILGRASTIM
     Indication: LEUKOPENIA
     Dosage: UNK UNK,UNK
     Route: 058
     Dates: start: 19950124, end: 19950124
  13. ROHYPNOL [Suspect]
     Active Substance: FLUNITRAZEPAM
     Indication: SLEEP DISORDER
     Dosage: 1 DF,QD
     Route: 048
     Dates: start: 19950114, end: 19950123
  14. PLACEBO [Suspect]
     Active Substance: UNSPECIFIED INGREDIENT
     Dosage: UNK UNK,UNK
     Route: 048
     Dates: start: 19950115, end: 19950115
  15. TEMGESIC [Concomitant]
     Active Substance: BUPRENORPHINE HYDROCHLORIDE
     Indication: PAIN
     Dosage: UNK UNK,UNK
     Route: 060
     Dates: start: 19950124, end: 19950124
  16. LASIX [Suspect]
     Active Substance: FUROSEMIDE
     Indication: RENAL FAILURE
     Dosage: 1 DF,QD
     Route: 048
     Dates: start: 19950113, end: 19950331
  17. BISACODYL. [Suspect]
     Active Substance: BISACODYL
     Indication: CONSTIPATION
     Dosage: UNK UNK,UNK
     Route: 054
     Dates: start: 19950115, end: 19950115
  18. ENALAPRIL MALEATE. [Suspect]
     Active Substance: ENALAPRIL MALEATE
     Indication: HYPERTENSION
     Dosage: 1 DF,QD
     Route: 048
     Dates: start: 19941230, end: 19950124
  19. ACETYLCYSTEINE. [Suspect]
     Active Substance: ACETYLCYSTEINE
     Dosage: 3 DF,QD
     Route: 048
     Dates: start: 19950117, end: 19950118
  20. ACETYLCYSTEINE. [Suspect]
     Active Substance: ACETYLCYSTEINE
     Dosage: 3 DF,QD
     Route: 048
     Dates: start: 19950120, end: 19950331
  21. ERYPO [ERYTHROPOIETIN HUMAN] [Suspect]
     Active Substance: ERYTHROPOIETIN
     Dosage: 2000 IU,QD
     Route: 058
     Dates: start: 19950110, end: 19950110
  22. IMUREK [AZATHIOPRINE] [Suspect]
     Active Substance: AZATHIOPRINE
     Indication: SCLERODERMA
     Dosage: UNK UNK,UNK
     Route: 048
     Dates: start: 19950113, end: 19950116
  23. ERYTHROCIN [ERYTHROMYCIN] [Concomitant]
     Indication: INFECTION
     Dosage: 2 DF,QD
     Route: 042
     Dates: start: 19950118, end: 19950118
  24. PIRETANIDE [Concomitant]
     Active Substance: PIRETANIDE
     Indication: HYPERTENSION
     Dosage: 1 DF,QD
     Route: 048
     Dates: start: 19941228, end: 19941228
  25. TAVEGIL [CLEMASTINE] [Concomitant]
     Indication: HYPERSENSITIVITY
     Dosage: UNK UNK,UNK
     Route: 042
     Dates: start: 19950117, end: 19950117
  26. ISOPTIN [VERAPAMIL] [Concomitant]
     Dosage: 3 DF, QD
     Route: 048
     Dates: start: 19941229, end: 19950124
  27. ERYPO [ERYTHROPOIETIN HUMAN] [Suspect]
     Active Substance: ERYTHROPOIETIN
     Dosage: 2000 IU,QD
     Route: 058
     Dates: start: 19950117, end: 19950117
  28. TAZOBAC [Suspect]
     Active Substance: PIPERACILLIN SODIUM\TAZOBACTAM SODIUM
     Indication: INFECTION
     Dosage: 2 DF,QD
     Route: 042
  29. SENNA [Suspect]
     Active Substance: SENNA LEAF\SENNOSIDES\SENNOSIDES A AND B
     Indication: CONSTIPATION
     Dosage: UNK UNK,UNK
     Route: 048
     Dates: start: 19950113, end: 19950114
  30. NATRIUMHYDROGENCARBONAT [Concomitant]
     Active Substance: SODIUM BICARBONATE
     Indication: ACIDOSIS
     Dosage: UNK UNK,UNK
     Route: 042
     Dates: start: 19950118, end: 19950118
  31. PASPERTIN [METOCLOPRAMIDE HYDROCHLORIDE] [Concomitant]
     Active Substance: METOCLOPRAMIDE HYDROCHLORIDE
     Indication: NAUSEA
     Dosage: UNK UNK,UNK
     Route: 048
     Dates: start: 19941228, end: 19941228
  32. PEPDUL [Concomitant]
     Indication: ULCER
     Dosage: 1 DF,QD
     Route: 048
  33. PARACETAMOL [Suspect]
     Active Substance: ACETAMINOPHEN
     Indication: PYREXIA
     Dosage: UNK UNK,UNK
     Route: 054
     Dates: start: 19950117, end: 19950117
  34. IOXITALAMIC ACID [Suspect]
     Active Substance: IOXITALAMIC ACID
     Indication: X-RAY
     Dosage: UNK UNK,UNK
     Route: 048
     Dates: start: 19950115, end: 19950115
  35. IMODIUM [Concomitant]
     Active Substance: LOPERAMIDE HYDROCHLORIDE
     Indication: DIARRHOEA
     Dosage: UNK UNK,UNK
     Route: 048
     Dates: start: 19950118, end: 19950119
  36. ERYPO [ERYTHROPOIETIN HUMAN] [Suspect]
     Active Substance: ERYTHROPOIETIN
     Indication: ANAEMIA
     Dosage: 2000 IU,QD
     Route: 058
     Dates: start: 19950103, end: 19950103
  37. ERYPO [ERYTHROPOIETIN HUMAN] [Suspect]
     Active Substance: ERYTHROPOIETIN
     Dosage: 2000 IU,QD
     Route: 058
     Dates: start: 19950114, end: 19950114
  38. REMESTAN [Suspect]
     Active Substance: TEMAZEPAM
     Indication: SLEEP DISORDER
     Dosage: 1 DF,QD
     Route: 048
  39. SODIUM CHLORIDE. [Concomitant]
     Active Substance: SODIUM CHLORIDE
     Indication: HYPONATRAEMIA
     Dosage: UNK UNK,UNK
     Route: 042
     Dates: start: 19950117, end: 19950117
  40. URBASON [METHYLPREDNISOLONE] [Concomitant]
     Indication: SCLERODERMA
     Dosage: UNK UNK,UNK
     Route: 048
  41. TRAMAL [Concomitant]
     Active Substance: TRAMADOL
     Indication: PAIN
     Dosage: UNK UNK,UNK
     Route: 048
     Dates: start: 19950118, end: 19950121
  42. SOLU-DECORTIN-H [Concomitant]
     Active Substance: PREDNISOLONE SODIUM SUCCINATE
     Indication: HYPERSENSITIVITY
     Dosage: UNK
     Route: 042
     Dates: start: 19950117, end: 19950117
  43. TRENTAL [Suspect]
     Active Substance: PENTOXIFYLLINE
     Indication: CARDIOVASCULAR DISORDER
     Dosage: 1200 MG,QD
     Route: 048
     Dates: start: 19950117, end: 19950124
  44. ERYPO [ERYTHROPOIETIN HUMAN] [Suspect]
     Active Substance: ERYTHROPOIETIN
     Dosage: 2000 IU,QD
     Route: 058
     Dates: start: 19950105, end: 19950105
  45. ERYPO [ERYTHROPOIETIN HUMAN] [Suspect]
     Active Substance: ERYTHROPOIETIN
     Dosage: 2000 IU,QD
     Route: 058
     Dates: start: 19950107, end: 19950107
  46. PENICILLAMINE [Suspect]
     Active Substance: PENICILLAMINE
     Indication: SCLERODERMA
     Dosage: UNK UNK,UNK
     Route: 048
     Dates: start: 19941229, end: 19950124
  47. OMEPRAZOLE. [Concomitant]
     Active Substance: OMEPRAZOLE
     Indication: ULCER
     Dosage: 2 DF,QD
     Route: 048
     Dates: start: 19950118, end: 19950124
  48. MONO-EMBOLEX NM [Concomitant]
     Indication: THROMBOSIS PROPHYLAXIS
     Dosage: 1 DF,QD
     Route: 058
  49. ADALAT [Concomitant]
     Active Substance: NIFEDIPINE
     Indication: HYPERTENSION
     Dosage: 1 DF,QD
     Route: 048
     Dates: start: 19941228, end: 19941228
  50. SAROTEN [Concomitant]
     Active Substance: AMITRIPTYLINE
     Indication: DEPRESSION
     Dosage: UNK UNK,UNK
     Route: 048
     Dates: start: 19950124, end: 19950331

REACTIONS (15)
  - Pneumonia [Unknown]
  - Stevens-Johnson syndrome [Unknown]
  - Off label use [Fatal]
  - Blood lactate dehydrogenase increased [Unknown]
  - Brain injury [Fatal]
  - Renal failure [Fatal]
  - Lymphocytosis [Unknown]
  - Pruritus [Unknown]
  - Toxic epidermal necrolysis [Fatal]
  - Blood creatinine increased [Unknown]
  - Rash [Unknown]
  - Renal failure [Unknown]
  - Blister [Unknown]
  - Blood urea increased [Unknown]
  - Leukocytosis [Unknown]

NARRATIVE: CASE EVENT DATE: 19950117
